FAERS Safety Report 10742434 (Version 1)
Quarter: 2015Q1

REPORT INFORMATION
  Report Type: Other
  Country: GB (occurrence: GB)
  Receive Date: 20150127
  Receipt Date: 20150127
  Transmission Date: 20150721
  Serious: Yes (Other)
  Sender: FDA-Public Use
  Company Number: GB-MYLANLABS-2015M1001227

PATIENT

DRUGS (6)
  1. TOLTERODINE [Concomitant]
     Active Substance: TOLTERODINE
     Dosage: 2 MG, QD
     Dates: start: 201406
  2. DOXYCYCLINE. [Suspect]
     Active Substance: DOXYCYCLINE
     Indication: CHRONIC OBSTRUCTIVE PULMONARY DISEASE
     Dosage: 100 MG, UNK (2 STAT)
     Route: 048
     Dates: start: 20141231
  3. ATORVASTATIN [Concomitant]
     Active Substance: ATORVASTATIN
     Dosage: 20 MG, QD
     Route: 048
     Dates: start: 2012
  4. FOSTAIR [Concomitant]
     Active Substance: BECLOMETHASONE\FORMOTEROL
     Dosage: 2 DF, UNK (2 PUFFS TWICE DAILY AS NECESSARY)
  5. QUININE SULPHATE [Concomitant]
     Active Substance: QUININE SULFATE
     Dosage: 200 MG, UNK (AT NIGHT)
     Dates: start: 201405
  6. SALBUTAMOL [Concomitant]
     Active Substance: ALBUTEROL
     Dosage: 2 DF, UNK (2 PUFFS TWICE DAILY AS NECESSARY)

REACTIONS (4)
  - Malaise [Unknown]
  - Vomiting [Unknown]
  - Abdominal pain upper [Unknown]
  - Retching [Unknown]

NARRATIVE: CASE EVENT DATE: 20141231
